FAERS Safety Report 13754827 (Version 1)
Quarter: 2017Q3

REPORT INFORMATION
  Report Type: Report from Study
  Country: IT (occurrence: IT)
  Receive Date: 20170714
  Receipt Date: 20170714
  Transmission Date: 20171127
  Serious: Yes (Hospitalization)
  Sender: FDA-Public Use
  Company Number: IT-TEVA-785016ACC

PATIENT
  Age: 47 Year
  Sex: Male

DRUGS (1)
  1. AMLODIPINE [Suspect]
     Active Substance: AMLODIPINE BESYLATE
     Indication: HYPERTENSION
     Dosage: 5 MILLIGRAM DAILY;
     Route: 048
     Dates: start: 20170511, end: 20170521

REACTIONS (4)
  - Paraesthesia [Unknown]
  - Fall [Unknown]
  - Vertigo [Unknown]
  - Asthenia [Unknown]

NARRATIVE: CASE EVENT DATE: 20170521
